FAERS Safety Report 12209031 (Version 1)
Quarter: 2016Q1

REPORT INFORMATION
  Report Type: Spontaneous
  Country: FR (occurrence: FR)
  Receive Date: 20160324
  Receipt Date: 20160324
  Transmission Date: 20160526
  Serious: Yes (Life-Threatening)
  Sender: FDA-Public Use
  Company Number: FR-TEVA-644762ISR

PATIENT
  Age: 65 Year
  Sex: Female

DRUGS (11)
  1. MANTADIX 100 MG [Suspect]
     Active Substance: AMANTADINE HYDROCHLORIDE
     Indication: PARKINSON^S DISEASE
     Dosage: 100 MILLIGRAM DAILY;
     Route: 048
     Dates: start: 201311, end: 20160228
  2. SINEMET [Suspect]
     Active Substance: CARBIDOPA\LEVODOPA
     Indication: PARKINSON^S DISEASE
     Dosage: CARBIDOPA 25 MG + LEVODOPA 250 MG
     Route: 048
     Dates: start: 2012
  3. SIFROL LP 1.05 MG [Suspect]
     Active Substance: PRAMIPEXOLE
     Indication: PARKINSON^S DISEASE
     Route: 048
     Dates: start: 2009, end: 20160228
  4. APOMORPHINE [Concomitant]
     Active Substance: APOMORPHINE
  5. IMOVANE [Suspect]
     Active Substance: ZOPICLONE
     Indication: SLEEP DISORDER THERAPY
     Route: 048
     Dates: start: 2012, end: 20160228
  6. APOKINON [Suspect]
     Active Substance: APOMORPHINE
     Indication: PARKINSON^S DISEASE
     Route: 058
     Dates: start: 20160121, end: 20160302
  7. MODOPAR 125 (100 MG/25 MG) [Suspect]
     Active Substance: BENSERAZIDE\LEVODOPA
     Indication: PARKINSON^S DISEASE
     Dosage: BENSERAZIDE 25 MG + LEVODOPA 100 MG
     Route: 048
     Dates: start: 2012, end: 20160217
  8. AZILECT [Suspect]
     Active Substance: RASAGILINE MESYLATE
     Indication: PARKINSON^S DISEASE
     Dosage: 1 MILLIGRAM DAILY;
     Route: 048
     Dates: start: 2009, end: 20160228
  9. SINEMET [Suspect]
     Active Substance: CARBIDOPA\LEVODOPA
     Dosage: 5 DOSAGE FORMS DAILY; CARBIDOPA 25 MG + LEVODOPA 250 MG
     Route: 048
     Dates: end: 20160228
  10. SEROPLEX [Suspect]
     Active Substance: ESCITALOPRAM OXALATE
     Route: 048
     Dates: start: 2012, end: 20160228
  11. ALPRAZOLAM. [Concomitant]
     Active Substance: ALPRAZOLAM

REACTIONS (2)
  - Lung disorder [Recovering/Resolving]
  - Acute respiratory distress syndrome [Recovering/Resolving]

NARRATIVE: CASE EVENT DATE: 20160228
